FAERS Safety Report 10909838 (Version 1)
Quarter: 2015Q1

REPORT INFORMATION
  Report Type: Spontaneous
  Country: US (occurrence: US)
  Receive Date: 20150312
  Receipt Date: 20150312
  Transmission Date: 20150721
  Serious: No
  Sender: FDA-Public Use
  Company Number: US-SA-2014SA051752

PATIENT
  Age: 68 Year
  Sex: Female

DRUGS (2)
  1. ALL OTHER THERAPEUTIC PRODUCTS [Suspect]
     Active Substance: UNSPECIFIED INGREDIENT
     Indication: PRODUCT USED FOR UNKNOWN INDICATION
     Route: 065
  2. NASACORT ALLERGY 24HR [Suspect]
     Active Substance: TRIAMCINOLONE ACETONIDE
     Indication: EAR DISORDER
     Route: 065
     Dates: start: 20140409, end: 20140410

REACTIONS (2)
  - Anosmia [Not Recovered/Not Resolved]
  - Ageusia [Not Recovered/Not Resolved]
